FAERS Safety Report 25310574 (Version 1)
Quarter: 2025Q2

REPORT INFORMATION
  Report Type: Report from Study
  Country: CL (occurrence: CL)
  Receive Date: 20250514
  Receipt Date: 20250514
  Transmission Date: 20250717
  Serious: Yes (Other)
  Sender: JOHNSON AND JOHNSON
  Company Number: CL-JNJFOC-20250505415

PATIENT
  Age: 60 Year
  Sex: Female

DRUGS (1)
  1. SIMPONI [Suspect]
     Active Substance: GOLIMUMAB
     Indication: Rheumatoid arthritis
     Dates: start: 20250205

REACTIONS (5)
  - Pneumonitis [Unknown]
  - Rheumatoid arthritis [Recovering/Resolving]
  - Asthma [Unknown]
  - Bronchitis [Unknown]
  - Hypersensitivity [Recovering/Resolving]
